FAERS Safety Report 5231178-8 (Version None)
Quarter: 2007Q1

REPORT INFORMATION
  Report Type: 
  Country: None (occurrence: None)
  Receive Date: 20070206
  Receipt Date: 20070124
  Transmission Date: 20070707
  Serious: Yes (Other)
  Sender: FDA-Public Use
  Company Number: US-ELI_LILLY_AND_COMPANY-US200701004939

PATIENT
  Sex: Male

DRUGS (2)
  1. PROZAC [Suspect]
     Indication: JOB CHANGE
     Route: 048
  2. ALPRAZOLAM [Concomitant]
     Indication: JOB CHANGE

REACTIONS (3)
  - MENTAL DISORDER [None]
  - NERVOUS SYSTEM DISORDER [None]
  - THEFT [None]
